FAERS Safety Report 7028252-2 (Version None)
Quarter: 2010Q4

REPORT INFORMATION
  Report Type: 
  Country: None (occurrence: None)
  Receive Date: 20101005
  Receipt Date: 20100927
  Transmission Date: 20110411
  Serious: Yes (Other)
  Sender: FDA-Public Use
  Company Number: US-PFIZER INC-2010107046

PATIENT
  Sex: Female
  Weight: 120 kg

DRUGS (4)
  1. XALATAN [Suspect]
     Indication: GLAUCOMA
     Dosage: ONE DROP IN EACH EYE DAILY AT BEDTIME
     Route: 047
  2. XALATAN [Suspect]
     Indication: OPEN ANGLE GLAUCOMA
  3. SPIRIVA [Concomitant]
     Dosage: UNK
  4. ALBUTEROL [Concomitant]
     Dosage: ONCE DAILY IN EACH EYE

REACTIONS (3)
  - CATARACT OPERATION [None]
  - DRUG INEFFECTIVE [None]
  - INTRAOCULAR PRESSURE INCREASED [None]
